FAERS Safety Report 19759869 (Version 11)
Quarter: 2024Q3

REPORT INFORMATION
  Report Type: Report from Study
  Country: US (occurrence: US)
  Receive Date: 20210830
  Receipt Date: 20240930
  Transmission Date: 20241017
  Serious: No
  Sender: NOVARTIS
  Company Number: NVSC2021US195547

PATIENT
  Age: 63 Year
  Sex: Female

DRUGS (1)
  1. KESIMPTA [Suspect]
     Active Substance: OFATUMUMAB
     Indication: Multiple sclerosis
     Dosage: UNK
     Route: 058
     Dates: start: 20220824

REACTIONS (10)
  - Phobia [Unknown]
  - Anger [Unknown]
  - Stress [Unknown]
  - Feeling abnormal [Unknown]
  - Migraine [Unknown]
  - Contusion [Recovered/Resolved]
  - Tremor [Unknown]
  - Fall [Unknown]
  - Foot fracture [Recovered/Resolved]
  - Gait disturbance [Unknown]

NARRATIVE: CASE EVENT DATE: 20230314
